FAERS Safety Report 4823683-0 (Version None)
Quarter: 2005Q4

REPORT INFORMATION
  Report Type: 
  Country: None (occurrence: None)
  Receive Date: 20051107
  Receipt Date: 20051025
  Transmission Date: 20060501
  Serious: Yes (Hospitalization)
  Sender: FDA-Public Use
  Company Number: 2005147937

PATIENT
  Sex: Female

DRUGS (4)
  1. ZELDOX (CAPSULES) (ZIPRASIDONE) [Suspect]
     Indication: DEPRESSION
     Dosage: 20 MG (20 MG, 1 IN 1 D), ORAL
     Route: 048
  2. LORAZEPAM [Concomitant]
  3. CYMBALTA [Concomitant]
  4. LITHIUM (LITHIUM) [Concomitant]

REACTIONS (2)
  - MUSCLE RIGIDITY [None]
  - PARKINSONISM [None]
